FAERS Safety Report 7051660-0 (Version None)
Quarter: 2010Q4

REPORT INFORMATION
  Report Type: 
  Country: None (occurrence: None)
  Receive Date: 20101019
  Receipt Date: 20101013
  Transmission Date: 20110411
  Serious: Yes (Hospitalization)
  Sender: FDA-Public Use
  Company Number: JP-ROCHE-734214

PATIENT
  Age: 10 Year
  Sex: Male

DRUGS (2)
  1. TAMIFLU [Suspect]
     Indication: INFLUENZA
     Dosage: NOTE: DOSAGE IS UNCERTAIN, DOSE FORM: UNCERTAINTY
     Route: 048
  2. STOMACHIC [Suspect]
     Indication: PRODUCT USED FOR UNKNOWN INDICATION
     Dosage: REPORTED DRUG NAME: STOMACHICS AND DIGESTIVES, NOTE: DOSAGE IS UNCERTAIN
     Route: 048

REACTIONS (1)
  - HEPATITIS FULMINANT [None]
